FAERS Safety Report 5502013-5 (Version None)
Quarter: 2007Q4

REPORT INFORMATION
  Report Type: 
  Country: None (occurrence: None)
  Receive Date: 20071030
  Receipt Date: 20071026
  Transmission Date: 20080405
  Serious: Yes (Other)
  Sender: FDA-Public Use
  Company Number: B0492877A

PATIENT
  Age: 19 Year

DRUGS (2)
  1. PAXIL [Suspect]
     Indication: MAJOR DEPRESSION
     Dosage: 10MG PER DAY
     Route: 048
     Dates: start: 20071017, end: 20071017
  2. ZOLPIDEM [Concomitant]
     Dosage: 5MG PER DAY
     Route: 048
     Dates: start: 20071017, end: 20071017

REACTIONS (2)
  - AMIMIA [None]
  - STARING [None]
